FAERS Safety Report 24607646 (Version 1)
Quarter: 2024Q4

REPORT INFORMATION
  Report Type: Spontaneous
  Country: CN (occurrence: CN)
  Receive Date: 20241112
  Receipt Date: 20241112
  Transmission Date: 20250114
  Serious: Yes (Other)
  Sender: SANOFI AVENTIS
  Company Number: CN-SA-2024SA322275

PATIENT
  Age: 47 Year
  Sex: Male
  Weight: 65 kg

DRUGS (8)
  1. OXALIPLATIN [Suspect]
     Active Substance: OXALIPLATIN
     Indication: Symptomatic treatment
     Dosage: 150 MG, 1X
     Route: 041
     Dates: start: 20240730, end: 20240730
  2. OXALIPLATIN [Suspect]
     Active Substance: OXALIPLATIN
     Dosage: 135 MG, 1X
     Route: 041
     Dates: start: 20240817, end: 20240817
  3. IRINOTECAN HYDROCHLORIDE [Suspect]
     Active Substance: IRINOTECAN HYDROCHLORIDE
     Indication: Symptomatic treatment
     Dosage: 270 MG, 1X
     Route: 041
     Dates: start: 20240730, end: 20240730
  4. IRINOTECAN HYDROCHLORIDE [Suspect]
     Active Substance: IRINOTECAN HYDROCHLORIDE
     Dosage: 240 MG, 1X
     Route: 041
     Dates: start: 20240817, end: 20240817
  5. FLUOROURACIL [Concomitant]
     Active Substance: FLUOROURACIL
     Indication: Symptomatic treatment
     Dosage: 0.7 G, 1X
     Route: 041
     Dates: start: 20240730, end: 20240730
  6. FLUOROURACIL [Concomitant]
     Active Substance: FLUOROURACIL
     Dosage: 4250 MG, 1X; MICRO PUMP INJECTION FOR 46 H
     Dates: start: 20240730, end: 20240730
  7. FLUOROURACIL [Concomitant]
     Active Substance: FLUOROURACIL
     Dosage: 0.65 G, 1X
     Route: 041
     Dates: start: 20240817, end: 20240817
  8. FLUOROURACIL [Concomitant]
     Active Substance: FLUOROURACIL
     Dosage: 3750 MG, 1X; MICRO PUMP INJECTION FOR 46 H
     Route: 041
     Dates: start: 20240817, end: 20240817

REACTIONS (2)
  - Hepatic failure [Recovered/Resolved]
  - Hepatic enzyme increased [Recovered/Resolved]

NARRATIVE: CASE EVENT DATE: 20240812
